FAERS Safety Report 13887904 (Version 1)
Quarter: 2017Q3

REPORT INFORMATION
  Report Type: Spontaneous
  Country: FR (occurrence: FR)
  Receive Date: 20170821
  Receipt Date: 20170821
  Transmission Date: 20171127
  Serious: Yes (Hospitalization)
  Sender: FDA-Public Use
  Company Number: FR-SA-2017SA150021

PATIENT
  Age: 28 Year
  Sex: Female

DRUGS (4)
  1. IKOREL [Suspect]
     Active Substance: NICORANDIL
     Route: 048
  2. TAHOR [Suspect]
     Active Substance: ATORVASTATIN CALCIUM
     Route: 048
  3. PLAVIX [Suspect]
     Active Substance: CLOPIDOGREL BISULFATE
     Route: 048
  4. LEXOMIL [Suspect]
     Active Substance: BROMAZEPAM
     Dosage: DOSE AND DAILY DOSE: 1 TO 2 BOXES/DAY
     Route: 048

REACTIONS (2)
  - Premature rupture of membranes [Unknown]
  - Exposure during pregnancy [Unknown]
